FAERS Safety Report 10163521 (Version 1)
Quarter: 2014Q2

REPORT INFORMATION
  Report Type: Spontaneous
  Country: US (occurrence: US)
  Receive Date: 20140509
  Receipt Date: 20140509
  Transmission Date: 20141212
  Serious: Yes (Life-Threatening, Hospitalization, Other)
  Sender: FDA-Public Use
  Company Number: US-BAYER-2014-067724

PATIENT
  Age: 52 Year
  Sex: Male

DRUGS (2)
  1. ACETYLSALICYLIC ACID({=100 MG) [Suspect]
     Indication: CARDIOVASCULAR EVENT PROPHYLAXIS
     Dosage: 81 MG, PER DAY
  2. SERTRALINE [Concomitant]
     Indication: ANXIETY

REACTIONS (4)
  - Rectal haemorrhage [Recovered/Resolved]
  - Circulatory collapse [Recovered/Resolved]
  - Unresponsive to stimuli [None]
  - Rectal ulcer [None]
